FAERS Safety Report 10944240 (Version 2)
Quarter: 2015Q2

REPORT INFORMATION
  Report Type: Spontaneous
  Country: NL (occurrence: NL)
  Receive Date: 20150323
  Receipt Date: 20150402
  Transmission Date: 20150821
  Serious: Yes (Other)
  Sender: FDA-Public Use
  Company Number: NL-BEH-2015049843

PATIENT
  Sex: Male

DRUGS (3)
  1. PLECONARIL [Suspect]
     Active Substance: PLECONARIL
     Indication: ECHOVIRUS TEST POSITIVE
     Dosage: STARTED OCTOBER 2008
  2. IVIG [Suspect]
     Active Substance: HUMAN IMMUNOGLOBULIN G
     Indication: ECHOVIRUS TEST POSITIVE
     Dosage: TREATED WITH FOR OVER 40 YEARS
     Route: 042
  3. IVIG [Suspect]
     Active Substance: HUMAN IMMUNOGLOBULIN G
     Indication: ENTEROVIRUS TEST POSITIVE
     Dosage: DOSE INCREASED TO 30 G PER WEEK
     Route: 042

REACTIONS (2)
  - Drug ineffective for unapproved indication [Unknown]
  - Pathogen resistance [Unknown]
